FAERS Safety Report 9624796 (Version 1)
Quarter: 2013Q4

REPORT INFORMATION
  Report Type: Spontaneous
  Country: US (occurrence: US)
  Receive Date: 20131015
  Receipt Date: 20131015
  Transmission Date: 20140711
  Serious: No
  Sender: FDA-Public Use
  Company Number: US-009507513-1310USA005422

PATIENT
  Age: 66 Year
  Sex: Female

DRUGS (1)
  1. MIRALAX [Suspect]
     Indication: COLONOSCOPY
     Dosage: 238 G, UNKNOWN
     Route: 048

REACTIONS (2)
  - Overdose [Unknown]
  - Off label use [Unknown]
